APPROVED DRUG PRODUCT: FLURANDRENOLIDE
Active Ingredient: FLURANDRENOLIDE
Strength: 0.05%
Dosage Form/Route: OINTMENT;TOPICAL
Application: A207851 | Product #001
Applicant: TELIGENT PHARMA INC
Approved: Dec 30, 2016 | RLD: No | RS: Yes | Type: RX